FAERS Safety Report 15657902 (Version 1)
Quarter: 2018Q4

REPORT INFORMATION
  Report Type: Spontaneous
  Country: US (occurrence: US)
  Receive Date: 20181126
  Receipt Date: 20181126
  Transmission Date: 20190205
  Serious: Yes (Hospitalization)
  Sender: FDA-Public Use
  Company Number: None

PATIENT
  Age: 84 Year
  Sex: Female
  Weight: 60.3 kg

DRUGS (1)
  1. BACLOFEN 10MG TABLETS [Suspect]
     Active Substance: BACLOFEN
     Indication: SCIATICA
     Dosage: ?          QUANTITY:1 TABLET(S);?
     Route: 048
     Dates: start: 20170224, end: 20170225

REACTIONS (4)
  - Vomiting [None]
  - Urinary tract infection [None]
  - Hallucination [None]
  - Lethargy [None]

NARRATIVE: CASE EVENT DATE: 20170225
